FAERS Safety Report 17655224 (Version 2)
Quarter: 2020Q2

REPORT INFORMATION
  Report Type: Spontaneous
  Country: US (occurrence: US)
  Receive Date: 20200410
  Receipt Date: 20200414
  Transmission Date: 20200713
  Serious: No
  Sender: FDA-Public Use
  Company Number: US-SA-2020SA090655

PATIENT
  Age: 65 Year
  Sex: Female

DRUGS (1)
  1. PRALUENT [Suspect]
     Active Substance: ALIROCUMAB
     Indication: BLOOD CHOLESTEROL INCREASED
     Dosage: 75 MG, QOW
     Dates: start: 202001

REACTIONS (8)
  - Product administered at inappropriate site [Unknown]
  - Paranasal sinus discomfort [Recovering/Resolving]
  - Injury associated with device [Unknown]
  - Sinusitis [Recovering/Resolving]
  - Sinus headache [Recovering/Resolving]
  - Wrong technique in device usage process [Unknown]
  - Erythema [Unknown]
  - Rhinorrhoea [Recovering/Resolving]

NARRATIVE: CASE EVENT DATE: 202001
